FAERS Safety Report 26041181 (Version 1)
Quarter: 2025Q4

REPORT INFORMATION
  Report Type: Spontaneous
  Country: US (occurrence: None)
  Receive Date: 20251112
  Receipt Date: 20251112
  Transmission Date: 20260117
  Serious: Yes (Hospitalization)
  Sender: FDA-CTU
  Company Number: None

PATIENT
  Age: 61 Year
  Sex: Female
  Weight: 80.1 kg

DRUGS (1)
  1. MAGNESIUM CITRATE [Suspect]
     Active Substance: MAGNESIUM CITRATE
     Dosage: OTHER QUANTITY : 1 1;?FREQUENCY : AS NEEDED;?OTHER ROUTE : COLONOSPY PREP;?
     Route: 050
     Dates: start: 20251105, end: 20251105

REACTIONS (8)
  - Blood magnesium increased [None]
  - Blood potassium increased [None]
  - Blood sodium decreased [None]
  - Loss of consciousness [None]
  - Blood pressure decreased [None]
  - Anal incontinence [None]
  - Body temperature decreased [None]
  - Unresponsive to stimuli [None]

NARRATIVE: CASE EVENT DATE: 20251105
